FAERS Safety Report 19196601 (Version 4)
Quarter: 2023Q1

REPORT INFORMATION
  Report Type: Spontaneous
  Country: US (occurrence: US)
  Receive Date: 20210429
  Receipt Date: 20230126
  Transmission Date: 20230418
  Serious: Yes (Death, Disabling, Other)
  Sender: FDA-Public Use
  Company Number: US-PFIZER INC-2021444248

PATIENT
  Age: 78 Year
  Sex: Female

DRUGS (5)
  1. BOSULIF [Suspect]
     Active Substance: BOSUTINIB MONOHYDRATE
     Indication: Leukaemia
     Dosage: 100 MG, DAILY (ONE A DAY)
  2. BOSULIF [Suspect]
     Active Substance: BOSUTINIB MONOHYDRATE
     Dosage: 200 MG, DAILY (TWO A DAY)
  3. BOSULIF [Suspect]
     Active Substance: BOSUTINIB MONOHYDRATE
     Dosage: 400 MG, DAILY (FOUR A DAY)
  4. BOSULIF [Suspect]
     Active Substance: BOSUTINIB MONOHYDRATE
     Dosage: UNK UNK, 4X/DAY
  5. BOSULIF [Suspect]
     Active Substance: BOSUTINIB MONOHYDRATE
     Dosage: TAKING ONLY 1 A DAY

REACTIONS (13)
  - Death [Fatal]
  - Second primary malignancy [Unknown]
  - Breast cancer [Unknown]
  - Colon cancer [Unknown]
  - Seizure [Unknown]
  - Gait disturbance [Unknown]
  - Intentional product use issue [Unknown]
  - Diarrhoea [Unknown]
  - Vomiting [Unknown]
  - Illness [Unknown]
  - Blood potassium increased [Unknown]
  - Memory impairment [Unknown]
  - Stomatitis [Unknown]
